FAERS Safety Report 4873738-X (Version None)
Quarter: 2006Q1

REPORT INFORMATION
  Report Type: 
  Country: None (occurrence: None)
  Receive Date: 20060104
  Receipt Date: 20051227
  Transmission Date: 20060701
  Serious: Yes (Hospitalization)
  Sender: FDA-Public Use
  Company Number: 2005BI015355

PATIENT
  Age: 57 Year
  Sex: Female

DRUGS (7)
  1. AVONEX [Suspect]
     Indication: MULTIPLE SCLEROSIS
     Dosage: 30 UG; QW; IM
     Route: 030
     Dates: start: 19981101
  2. COPAXONE [Concomitant]
  3. NEURONTIN [Concomitant]
  4. TRAZODONE HCL [Concomitant]
  5. ACCUPRIL [Concomitant]
  6. ATENOLOL [Concomitant]
  7. NIFEDIAC [Concomitant]

REACTIONS (2)
  - ARTHRITIS [None]
  - KNEE ARTHROPLASTY [None]
